FAERS Safety Report 12612688 (Version 2)
Quarter: 2016Q3

REPORT INFORMATION
  Report Type: Report from Study
  Country: CN (occurrence: CN)
  Receive Date: 20160801
  Receipt Date: 20160805
  Transmission Date: 20161109
  Serious: Yes (Hospitalization)
  Sender: FDA-Public Use
  Company Number: PHHY2016CN027288

PATIENT
  Age: 21 Year
  Sex: Male
  Weight: 57 kg

DRUGS (7)
  1. MYFORTIC [Suspect]
     Active Substance: MYCOPHENOLATE SODIUM
     Indication: RENAL TRANSPLANT
     Dosage: 1500 MG, QD
     Route: 048
     Dates: start: 20150912, end: 20160216
  2. FELODIPINE. [Concomitant]
     Active Substance: FELODIPINE
     Indication: HYPERTENSION
     Dosage: 5 MG, UNK
     Route: 065
     Dates: start: 20160216, end: 20160226
  3. MYFORTIC [Suspect]
     Active Substance: MYCOPHENOLATE SODIUM
     Indication: IMMUNOSUPPRESSANT DRUG THERAPY
     Dosage: 500 MG, QD
     Route: 048
     Dates: start: 20160216, end: 20160226
  4. TELMISARTAN. [Concomitant]
     Active Substance: TELMISARTAN
     Indication: HYPERTENSION
     Dosage: 80 MG, UNK
     Route: 065
     Dates: start: 20160216, end: 20160226
  5. TELMISARTAN. [Concomitant]
     Active Substance: TELMISARTAN
     Dosage: 80 MG, UNK
     Route: 065
     Dates: start: 20160303, end: 20160307
  6. FELODIPINE. [Concomitant]
     Active Substance: FELODIPINE
     Dosage: 5 MG, QD
     Route: 065
     Dates: start: 20160504
  7. FELODIPINE. [Concomitant]
     Active Substance: FELODIPINE
     Indication: RENAL HYPERTENSION
     Dosage: 5 MG, UNK
     Route: 065
     Dates: start: 20160303, end: 20160307

REACTIONS (9)
  - Lung infection [Recovering/Resolving]
  - Pyrexia [Recovering/Resolving]
  - Focal segmental glomerulosclerosis [Recovering/Resolving]
  - Rectal polyp [Recovering/Resolving]
  - Haematochezia [Recovering/Resolving]
  - Fungal infection [Recovering/Resolving]
  - Anaemia [Recovering/Resolving]
  - Asthenia [Recovering/Resolving]
  - Peripheral swelling [Recovering/Resolving]

NARRATIVE: CASE EVENT DATE: 20160216
